FAERS Safety Report 6652664-X (Version None)
Quarter: 2010Q1

REPORT INFORMATION
  Report Type: 
  Country: None (occurrence: None)
  Receive Date: 20100326
  Receipt Date: 20100223
  Transmission Date: 20100710
  Serious: No
  Sender: FDA-Public Use
  Company Number: US-BAYER-201015827NA

PATIENT
  Age: 18 Year
  Sex: Female

DRUGS (2)
  1. YAZ [Suspect]
     Indication: ACNE
     Route: 048
     Dates: start: 20090101
  2. UNKNOWN DRUG [Concomitant]
     Indication: IRRITABLE BOWEL SYNDROME

REACTIONS (2)
  - NAUSEA [None]
  - SALT CRAVING [None]
